FAERS Safety Report 12816536 (Version 1)
Quarter: 2016Q4

REPORT INFORMATION
  Report Type: Spontaneous
  Country: US (occurrence: US)
  Receive Date: 20161005
  Receipt Date: 20161005
  Transmission Date: 20170207
  Serious: No
  Sender: FDA-Public Use
  Company Number: None

PATIENT
  Age: 6 Month
  Sex: Male
  Weight: 10.8 kg

DRUGS (2)
  1. TYLONOL ORIGEL [Concomitant]
  2. BABY TEETHING (HYLAND HOMEOPATHIC) [Suspect]
     Active Substance: HOMEOPATHICS
     Indication: TEETHING
     Dosage: ?          QUANTITY:3 TABLET(S);?
     Route: 060
     Dates: start: 20160915, end: 20161005

REACTIONS (2)
  - Discomfort [None]
  - Feeling abnormal [None]

NARRATIVE: CASE EVENT DATE: 20160915
